FAERS Safety Report 19733007 (Version 3)
Quarter: 2021Q3

REPORT INFORMATION
  Report Type: Spontaneous
  Country: JP (occurrence: JP)
  Receive Date: 20210823
  Receipt Date: 20210903
  Transmission Date: 20211014
  Serious: Yes (Other)
  Sender: FDA-Public Use
  Company Number: JP-009507513-2108JPN001412J

PATIENT
  Age: 72 Year
  Sex: Male
  Weight: 48 kg

DRUGS (2)
  1. DORIPENEM. [Concomitant]
     Active Substance: DORIPENEM
     Indication: DIABETIC GANGRENE
     Dosage: UNK
  2. SIVEXTRO [Suspect]
     Active Substance: TEDIZOLID PHOSPHATE
     Indication: DIABETIC GANGRENE
     Dosage: UNK
     Route: 048

REACTIONS (1)
  - Pseudomembranous colitis [Recovering/Resolving]
